FAERS Safety Report 24120453 (Version 2)
Quarter: 2024Q3

REPORT INFORMATION
  Report Type: Spontaneous
  Country: CN (occurrence: CN)
  Receive Date: 20240722
  Receipt Date: 20240802
  Transmission Date: 20241017
  Serious: Yes (Other)
  Sender: FRESENIUS KABI
  Company Number: CN-FreseniusKabi-FK202411099

PATIENT
  Sex: Female

DRUGS (2)
  1. PROPOFOL [Suspect]
     Active Substance: PROPOFOL
     Indication: Product used for unknown indication
     Dosage: DOSE: UNKNOWN?THERAPY START AND END DATE: UNKNOWN?REPACKAGE # 2309172
  2. REMIFENTANIL [Suspect]
     Active Substance: REMIFENTANIL
     Indication: Oocyte harvest

REACTIONS (1)
  - Coma [Recovering/Resolving]
